FAERS Safety Report 21148689 (Version 1)
Quarter: 2022Q3

REPORT INFORMATION
  Report Type: Spontaneous
  Country: FR (occurrence: None)
  Receive Date: 20220729
  Receipt Date: 20220729
  Transmission Date: 20221026
  Serious: Yes (Hospitalization)
  Sender: FDA-Public Use
  Company Number: 2022A263740

PATIENT
  Age: 11 Year
  Sex: Female
  Weight: 34 kg

DRUGS (5)
  1. EVUSHELD [Suspect]
     Active Substance: CILGAVIMAB\TIXAGEVIMAB
     Indication: COVID-19
     Dosage: UNKNOWN
     Route: 030
     Dates: start: 20220630, end: 20220630
  2. CYCLOPHOSPHAMIDE [Suspect]
     Active Substance: CYCLOPHOSPHAMIDE
     Indication: Ewing-like sarcoma
     Dosage: 1400ML IN TOTAL1400.0MG UNKNOWN
     Route: 042
     Dates: start: 20220627, end: 20220627
  3. AMIKACIN [Suspect]
     Active Substance: AMIKACIN
     Indication: Febrile neutropenia
     Dosage: 650MG TOTAL650.0MG UNKNOWN
     Route: 042
     Dates: start: 20220627, end: 20220627
  4. PIPERACILLIN SODIUM\TAZOBACTAM SODIUM [Suspect]
     Active Substance: PIPERACILLIN SODIUM\TAZOBACTAM SODIUM
     Indication: Febrile neutropenia
     Dosage: UNKNOWN
     Route: 042
     Dates: start: 20220630, end: 20220701
  5. VINCRISTINE SULFATE [Suspect]
     Active Substance: VINCRISTINE SULFATE
     Indication: Ewing-like sarcoma
     Dosage: 2MG TOTAL2.0ML UNKNOWN
     Route: 042
     Dates: start: 20220627, end: 20220627

REACTIONS (1)
  - Acute kidney injury [Recovered/Resolved]

NARRATIVE: CASE EVENT DATE: 20220701
